FAERS Safety Report 24085305 (Version 1)
Quarter: 2024Q3

REPORT INFORMATION
  Report Type: Spontaneous
  Country: CN (occurrence: CN)
  Receive Date: 20240712
  Receipt Date: 20240712
  Transmission Date: 20241016
  Serious: Yes (Other)
  Sender: BAXTER
  Company Number: None

PATIENT
  Age: 60 Year
  Sex: Female

DRUGS (1)
  1. MANNITOL [Suspect]
     Active Substance: MANNITOL
     Indication: Diuretic therapy
     Dosage: 100 ML ONCE DAILY (DOSAGE FORM: INJECTION)
     Route: 041
     Dates: start: 20240629, end: 20240630

REACTIONS (4)
  - Angioedema [Recovered/Resolved]
  - Pain in extremity [Recovered/Resolved]
  - Vascular pain [Recovered/Resolved]
  - Discomfort [Recovered/Resolved]

NARRATIVE: CASE EVENT DATE: 20240630
